FAERS Safety Report 6904542-6 (Version None)
Quarter: 2010Q3

REPORT INFORMATION
  Report Type: 
  Country: None (occurrence: None)
  Receive Date: 20100804
  Receipt Date: 20090612
  Transmission Date: 20110219
  Serious: No
  Sender: FDA-Public Use
  Company Number: US-PFIZER INC-2009183720

PATIENT
  Sex: Female
  Weight: 54.4 kg

DRUGS (2)
  1. LYRICA [Suspect]
     Indication: BURNING SENSATION
     Dosage: UNK
     Dates: start: 20090205, end: 20090201
  2. HYDROMORPHONE [Concomitant]
     Dosage: 4 MG, UNK

REACTIONS (4)
  - DIZZINESS [None]
  - SPEECH DISORDER [None]
  - TREMOR [None]
  - VISUAL IMPAIRMENT [None]
